FAERS Safety Report 5825366-7 (Version None)
Quarter: 2008Q3

REPORT INFORMATION
  Report Type: 
  Country: None (occurrence: None)
  Receive Date: 20080728
  Receipt Date: 20080728
  Transmission Date: 20090109
  Serious: Yes (Hospitalization)
  Sender: FDA-Public Use
  Company Number: None

PATIENT
  Sex: Female
  Weight: 64.4108 kg

DRUGS (1)
  1. ZETIA [Suspect]
     Indication: BLOOD CHOLESTEROL
     Dosage: 1-DAILY MAY THUR END OF JUNE

REACTIONS (6)
  - DIZZINESS [None]
  - MYALGIA [None]
  - NAUSEA [None]
  - NO THERAPEUTIC RESPONSE [None]
  - OEDEMA PERIPHERAL [None]
  - PAIN IN EXTREMITY [None]
